FAERS Safety Report 6698597-4 (Version None)
Quarter: 2010Q2

REPORT INFORMATION
  Report Type: 
  Country: None (occurrence: None)
  Receive Date: 20100427
  Receipt Date: 20100416
  Transmission Date: 20101027
  Serious: Yes (Death)
  Sender: FDA-Public Use
  Company Number: JP-PFIZER INC-2010042755

PATIENT
  Age: 79 Year
  Sex: Female
  Weight: 52 kg

DRUGS (10)
  1. SILDENAFIL CITRATE [Suspect]
     Indication: PULMONARY HYPERTENSION
     Dosage: 20 MG, 2X/DAY
     Route: 048
     Dates: start: 20091022, end: 20091027
  2. SILDENAFIL CITRATE [Suspect]
     Dosage: 20 MG, 3X/DAY
     Route: 048
     Dates: start: 20091028
  3. ADALAT CC [Concomitant]
     Route: 048
  4. MELOXICAM [Concomitant]
     Indication: BACK PAIN
     Route: 048
  5. FAMOTIDINE [Concomitant]
     Indication: REFLUX OESOPHAGITIS
     Route: 048
  6. PROCYLIN [Concomitant]
     Route: 048
  7. WARFARIN [Concomitant]
     Route: 048
  8. CRESTOR [Concomitant]
     Indication: HYPERLIPIDAEMIA
     Route: 048
  9. MAGNESIUM OXIDE [Concomitant]
     Indication: CONSTIPATION
     Route: 048
  10. SILECE [Concomitant]
     Indication: INSOMNIA
     Route: 048

REACTIONS (1)
  - RESPIRATORY ARREST [None]
